FAERS Safety Report 22660039 (Version 1)
Quarter: 2023Q2

REPORT INFORMATION
  Report Type: Spontaneous
  Country: US (occurrence: US)
  Receive Date: 20230630
  Receipt Date: 20230630
  Transmission Date: 20230722
  Serious: No
  Sender: FDA-Public Use
  Company Number: US-PFIZER INC-202300233225

PATIENT
  Age: 55 Year
  Sex: Female

DRUGS (2)
  1. PAXLOVID [Suspect]
     Active Substance: NIRMATRELVIR\RITONAVIR
     Indication: COVID-19 treatment
     Dosage: UNK
     Dates: start: 20230615, end: 20230620
  2. SYNTHROID [Concomitant]
     Active Substance: LEVOTHYROXINE SODIUM
     Dosage: UNK

REACTIONS (5)
  - Headache [Unknown]
  - Pyrexia [Unknown]
  - Sneezing [Unknown]
  - Nasal congestion [Unknown]
  - Sinus pain [Unknown]

NARRATIVE: CASE EVENT DATE: 20230618
